FAERS Safety Report 9942265 (Version 2)
Quarter: 2014Q1

REPORT INFORMATION
  Report Type: Spontaneous
  Country: PR (occurrence: PR)
  Receive Date: 20140303
  Receipt Date: 20140303
  Transmission Date: 20141002
  Serious: No
  Sender: FDA-Public Use
  Company Number: PR-ABBVIE-12P-131-0991337-00

PATIENT
  Age: 54 Year
  Sex: Female
  Weight: 54.48 kg

DRUGS (20)
  1. HUMIRA [Suspect]
     Indication: RHEUMATOID ARTHRITIS
     Route: 058
     Dates: start: 201209
  2. METHOTREXATE [Concomitant]
     Indication: RHEUMATOID ARTHRITIS
     Route: 048
  3. METHOTREXATE [Concomitant]
     Indication: SYSTEMIC LUPUS ERYTHEMATOSUS
  4. PREDNISONE [Concomitant]
     Indication: RHEUMATOID ARTHRITIS
     Route: 048
  5. PREDNISONE [Concomitant]
     Indication: SYSTEMIC LUPUS ERYTHEMATOSUS
  6. DURAGESIC [Concomitant]
     Indication: PAIN
     Dosage: 1 PATCH EVERY 72 HOURS
     Route: 061
  7. ULTRACET [Concomitant]
     Indication: PRODUCT USED FOR UNKNOWN INDICATION
     Route: 048
  8. COUMADIN [Concomitant]
     Indication: EMBOLISM
     Route: 048
  9. INDERAL [Concomitant]
     Indication: HYPERTENSION
     Route: 048
     Dates: start: 1998
  10. LOTREL [Concomitant]
     Indication: HYPERTENSION
     Route: 048
     Dates: start: 1998
  11. GLUCOPHAGE [Concomitant]
     Indication: DIABETES MELLITUS
     Route: 048
     Dates: start: 1998
  12. NEURONTIN [Concomitant]
     Indication: NEUROPATHY PERIPHERAL
     Route: 048
     Dates: start: 1996
  13. ELAVIL [Concomitant]
     Indication: DEPRESSION
     Route: 048
  14. CYMBALTA [Concomitant]
     Indication: DEPRESSION
     Route: 048
     Dates: start: 2007
  15. ZANTAC [Concomitant]
     Indication: GASTROINTESTINAL DISORDER
     Route: 048
     Dates: start: 2002
  16. IRON [Concomitant]
     Indication: HAEMOGLOBIN DECREASED
     Route: 048
     Dates: start: 2002
  17. FOLIC ACID [Concomitant]
     Indication: PRODUCT USED FOR UNKNOWN INDICATION
     Route: 048
     Dates: start: 1996
  18. CALTRATE [Concomitant]
     Indication: PRODUCT USED FOR UNKNOWN INDICATION
     Route: 048
     Dates: start: 1996
  19. PRAVACHOL [Concomitant]
     Indication: HYPERCHOLESTEROLAEMIA
     Route: 048
     Dates: start: 2002
  20. PRAVACHOL [Concomitant]
     Indication: HYPERTRIGLYCERIDAEMIA

REACTIONS (1)
  - Oropharyngeal discomfort [Recovered/Resolved]
